FAERS Safety Report 23349615 (Version 1)
Quarter: 2023Q4

REPORT INFORMATION
  Report Type: Report from Study
  Country: US (occurrence: US)
  Receive Date: 20231229
  Receipt Date: 20231229
  Transmission Date: 20240110
  Serious: Yes (Hospitalization, Other)
  Sender: FDA-Public Use
  Company Number: US-TAKEDA-2023TUS109128

PATIENT
  Sex: Male
  Weight: 72 kg

DRUGS (3)
  1. MARIBAVIR [Suspect]
     Active Substance: MARIBAVIR
     Indication: Cytomegalovirus infection
     Dosage: 400 MILLIGRAM, BID
     Route: 048
     Dates: start: 20231102
  2. MARIBAVIR [Suspect]
     Active Substance: MARIBAVIR
     Dosage: 400 MILLIGRAM, BID
     Route: 048
     Dates: start: 20231117
  3. MICONAZOLE [Concomitant]
     Active Substance: MICONAZOLE
     Dosage: 1 DOSAGE FORM, BID
     Route: 061
     Dates: start: 20231028

REACTIONS (6)
  - Cerebrovascular accident [Unknown]
  - COVID-19 [Unknown]
  - Urinary tract infection [Unknown]
  - Drug resistance [Unknown]
  - Drug tolerance [Unknown]
  - Weight decreased [Unknown]
